FAERS Safety Report 7553662-4 (Version None)
Quarter: 2011Q2

REPORT INFORMATION
  Report Type: 
  Country: None (occurrence: None)
  Receive Date: 20110609
  Receipt Date: 20110530
  Transmission Date: 20111010
  Serious: Yes (Life-Threatening)
  Sender: FDA-Public Use
  Company Number: 1000019011

PATIENT
  Age: 57 Year
  Sex: Male
  Weight: 81 kg

DRUGS (10)
  1. PAROXAT (PAROXETINE HYDROCHLORIDE) (30 MILLIGRAM) (PAROXETINE HYDROCHL [Concomitant]
  2. AMITRIPTYLINE (AMITRIPTYLINE HYDROCHLORIDE) (25 MILLIGRAM) (AMITRIPTYL [Concomitant]
  3. ROFLUMILAST (ROFLUMILAST) (TABLETS) [Suspect]
     Indication: CHRONIC OBSTRUCTIVE PULMONARY DISEASE
     Dosage: 500 MCG (ONCE DAILY),ORAL
     Route: 048
     Dates: start: 20110210, end: 20110219
  4. BERODUAL (IPRATROPIUM BROMIDE, FENOTEROL HYDROBROMIDE) (IPRATOPIUM BRO [Concomitant]
  5. PANTOZOL (PANTOPRAZOLE) (40 MILLIGRAM) (PANTOPRAZOLE) [Concomitant]
  6. SPIRIVA (TIOTROPIUM BROMIDE) (18 MICROGRAM) (TIOTROPIUM BROMIDE) [Concomitant]
  7. EUPHYLONG (THEOPHYLLINE) (375 MILLIGRAM) (THEOPHYLLINE) [Concomitant]
  8. SYMBICORT (BUDESONIDE, FORMOTEROL FUMARATE) (BUDESONIDE, FORMOTEROL FU [Concomitant]
  9. OXYGEN (OXYGEN) (OXYGEN) [Concomitant]
  10. CYMBALTA (DULOXETINE HYDROCHLORIDE) (DULOXETINE HYDROCHLORIDE) [Concomitant]

REACTIONS (10)
  - SUICIDAL IDEATION [None]
  - RESTLESSNESS [None]
  - DYSPNOEA [None]
  - ANXIETY [None]
  - PALPITATIONS [None]
  - TREMOR [None]
  - AGGRESSION [None]
  - IRRITABILITY [None]
  - PAIN IN EXTREMITY [None]
  - RASH [None]
